FAERS Safety Report 6623529-4 (Version None)
Quarter: 2010Q1

REPORT INFORMATION
  Report Type: 
  Country: None (occurrence: None)
  Receive Date: 20100310
  Receipt Date: 20100302
  Transmission Date: 20100710
  Serious: No
  Sender: FDA-Public Use
  Company Number: ID-BRACCO-000002

PATIENT
  Age: 48 Year
  Sex: Male

DRUGS (4)
  1. CORTICOSTEROID NOS [Suspect]
     Route: 065
  2. IOPAMIRO [Suspect]
     Indication: COMPUTERISED TOMOGRAM
     Route: 042
     Dates: start: 20091126, end: 20091126
  3. INSULIN INJECTION [Concomitant]
  4. NORMAL SALINE [Concomitant]
     Route: 042
     Dates: start: 20091126, end: 20091126

REACTIONS (4)
  - BLISTER [None]
  - DYSPNOEA [None]
  - ERYTHEMA [None]
  - LIMB DISCOMFORT [None]
